FAERS Safety Report 22993525 (Version 7)
Quarter: 2024Q4

REPORT INFORMATION
  Report Type: Spontaneous
  Country: JP (occurrence: JP)
  Receive Date: 20230927
  Receipt Date: 20241023
  Transmission Date: 20250115
  Serious: Yes (Life-Threatening, Disabling, Other)
  Sender: ALEXION PHARMACEUTICALS
  Company Number: 2023A216188

PATIENT
  Age: 74 Year

DRUGS (2)
  1. ANDEXXA [Suspect]
     Active Substance: ANDEXANET ALFA
     Indication: Extradural haematoma
     Dosage: 1760 MILLIGRAM, UNK
  2. EDOXABAN TOSYLATE [Concomitant]
     Active Substance: EDOXABAN TOSYLATE
     Dosage: DOSE UNKNOWN

REACTIONS (3)
  - Cerebral infarction [Not Recovered/Not Resolved]
  - Renal infarct [Not Recovered/Not Resolved]
  - Myocardial infarction [Not Recovered/Not Resolved]
